FAERS Safety Report 5166428-X (Version None)
Quarter: 2006Q4

REPORT INFORMATION
  Report Type: 
  Country: None (occurrence: None)
  Receive Date: 20061207
  Receipt Date: 20061006
  Transmission Date: 20070319
  Serious: Yes (Hospitalization)
  Sender: FDA-Public Use
  Company Number: PHHO2006LB16654

PATIENT
  Age: 23 Year
  Sex: Male
  Weight: 79.5 kg

DRUGS (4)
  1. EXJADE [Suspect]
     Indication: HAEMOSIDEROSIS
     Dosage: 2375 MG, QD
     Route: 048
     Dates: start: 20060609, end: 20061003
  2. EXJADE [Suspect]
     Dosage: NO TREATMENT
  3. EXJADE [Suspect]
     Dosage: 2375 MG, QD
     Route: 048
     Dates: end: 20061123
  4. ASPIRIN [Suspect]
     Dosage: 100 MG, QD
     Dates: start: 20060215, end: 20061003

REACTIONS (6)
  - ABDOMINAL PAIN UPPER [None]
  - DRUG INTERACTION [None]
  - DUODENAL ULCER PERFORATION [None]
  - PERFORATED DUODENAL ULCER REPAIR [None]
  - POSTOPERATIVE WOUND INFECTION [None]
  - PYREXIA [None]
